FAERS Safety Report 8045941-1 (Version None)
Quarter: 2012Q1

REPORT INFORMATION
  Report Type: 
  Country: None (occurrence: None)
  Receive Date: 20120113
  Receipt Date: 20120104
  Transmission Date: 20120608
  Serious: Yes (Death)
  Sender: FDA-Public Use
  Company Number: US-GLAXOSMITHKLINE-B0774911A

PATIENT
  Age: 67 Year

DRUGS (5)
  1. MELPHALAN HYDROCHLORIDE [Suspect]
     Route: 042
  2. ALEMTUZUMAB [Suspect]
     Route: 042
  3. TACROLIMUS [Concomitant]
     Route: 065
  4. CLOFARABINE [Suspect]
     Route: 042
  5. FILGRASTIM [Concomitant]
     Route: 058

REACTIONS (2)
  - PNEUMONIA [None]
  - ARRHYTHMIA [None]
